FAERS Safety Report 16144023 (Version 1)
Quarter: 2019Q2

REPORT INFORMATION
  Report Type: Spontaneous
  Country: US (occurrence: US)
  Receive Date: 20190401
  Receipt Date: 20190401
  Transmission Date: 20190711
  Serious: No
  Sender: FDA-Public Use
  Company Number: US-PFIZER INC-2019130898

PATIENT
  Age: 79 Year
  Sex: Female
  Weight: 66.22 kg

DRUGS (1)
  1. AROMASIN [Suspect]
     Active Substance: EXEMESTANE
     Dosage: DAILY
     Route: 048
     Dates: start: 20190312

REACTIONS (5)
  - Pollakiuria [Unknown]
  - Bladder pain [Unknown]
  - Paraesthesia oral [Unknown]
  - Pain in extremity [Unknown]
  - Mouth swelling [Unknown]
